FAERS Safety Report 7919514-2 (Version None)
Quarter: 2011Q4

REPORT INFORMATION
  Report Type: 
  Country: None (occurrence: None)
  Receive Date: 20111115
  Receipt Date: 20111031
  Transmission Date: 20120403
  Serious: Yes (Life-Threatening, Hospitalization)
  Sender: FDA-Public Use
  Company Number: COL_10178_2011

PATIENT
  Age: 49 Year
  Sex: Male

DRUGS (1)
  1. PLAX SPEARMINT ALCOHOL FREE MOUTHWASH [Suspect]
     Indication: DENTAL DISORDER PROPHYLAXIS
     Dosage: (1 DF QD, [A CAPFUL] ORAL)
     Route: 048
     Dates: end: 20111031

REACTIONS (2)
  - NO REACTION ON PREVIOUS EXPOSURE TO DRUG [None]
  - ANAPHYLACTIC SHOCK [None]
